FAERS Safety Report 5472395-1 (Version None)
Quarter: 2007Q3

REPORT INFORMATION
  Report Type: 
  Country: None (occurrence: None)
  Receive Date: 20070927
  Receipt Date: 20070920
  Transmission Date: 20080115
  Serious: Yes (Other)
  Sender: FDA-Public Use
  Company Number: TPA2007A01950

PATIENT

DRUGS (2)
  1. ACTOS [Suspect]
     Dosage: 15 MG, 1 IN 1 D, PER ORAL; 25 MG, 1 IN 1D, PER ORAL; 35 MG, 1 IN 1 D, PER ORAL
     Route: 048
     Dates: start: 20001001, end: 20030701
  2. ACTOS [Suspect]
     Dosage: 15 MG, 1 IN 1 D, PER ORAL; 25 MG, 1 IN 1D, PER ORAL; 35 MG, 1 IN 1 D, PER ORAL
     Route: 048
     Dates: start: 20000101

REACTIONS (2)
  - CEREBROVASCULAR ACCIDENT [None]
  - MACULAR OEDEMA [None]
